FAERS Safety Report 16954441 (Version 1)
Quarter: 2019Q4

REPORT INFORMATION
  Report Type: Spontaneous
  Country: US (occurrence: US)
  Receive Date: 20191023
  Receipt Date: 20191023
  Transmission Date: 20200122
  Serious: No
  Sender: FDA-Public Use
  Company Number: US-ROCHE-2368606

PATIENT
  Age: 71 Year
  Sex: Male
  Weight: 102.6 kg

DRUGS (3)
  1. ESBRIET [Suspect]
     Active Substance: PIRFENIDONE
     Dosage: TOOK TWO TABLETS THREE TIMES A DAY ;ONGOING: NO
     Route: 048
     Dates: start: 20190715, end: 20190721
  2. ESBRIET [Suspect]
     Active Substance: PIRFENIDONE
     Indication: IDIOPATHIC PULMONARY FIBROSIS
     Dosage: TOOK ONE TABLET THREE TIMES A DAY ;ONGOING: NO
     Route: 048
     Dates: start: 20190708, end: 20190714
  3. ESBRIET [Suspect]
     Active Substance: PIRFENIDONE
     Dosage: TAKES THREE TABLETS THREE TIMES A DAY ;ONGOING: YES
     Route: 048
     Dates: start: 20190722

REACTIONS (1)
  - White blood cell count increased [Unknown]

NARRATIVE: CASE EVENT DATE: 20190722
